FAERS Safety Report 14324812 (Version 2)
Quarter: 2018Q2

REPORT INFORMATION
  Report Type: Report from Study
  Country: US (occurrence: US)
  Receive Date: 20171226
  Receipt Date: 20180628
  Transmission Date: 20180711
  Serious: No
  Sender: FDA-Public Use
  Company Number: US-CLOVIS ONCOLOGY-CLO-2017-001244

PATIENT
  Sex: Female
  Weight: 95.24 kg

DRUGS (2)
  1. RUBRACA [Suspect]
     Active Substance: RUCAPARIB CAMSYLATE
     Dosage: 300MG AM/ 600MG PM
     Route: 065
     Dates: end: 201805
  2. RUBRACA [Suspect]
     Active Substance: RUCAPARIB CAMSYLATE
     Indication: OVARIAN CANCER
     Dosage: 600 MG, BID
     Route: 048
     Dates: start: 201711

REACTIONS (4)
  - Adverse event [Unknown]
  - Walking aid user [Unknown]
  - Underdose [Unknown]
  - Dizziness [Unknown]

NARRATIVE: CASE EVENT DATE: 2018
